FAERS Safety Report 8334960-3 (Version None)
Quarter: 2012Q2

REPORT INFORMATION
  Report Type: 
  Country: None (occurrence: None)
  Receive Date: 20120503
  Receipt Date: 20100310
  Transmission Date: 20120825
  Serious: No
  Sender: FDA-Public Use
  Company Number: US-TEVA-2010001413

PATIENT
  Sex: Female
  Weight: 47.67 kg

DRUGS (3)
  1. NUVIGIL [Suspect]
     Indication: NARCOLEPSY
     Dosage: 250 MILLIGRAM;
     Route: 048
     Dates: start: 20100219
  2. LOESTRIN 1.5/30 [Concomitant]
  3. EFFEXOR [Concomitant]
     Dates: start: 20090901

REACTIONS (1)
  - DRUG TOLERANCE [None]
